FAERS Safety Report 5077068-5 (Version None)
Quarter: 2006Q3

REPORT INFORMATION
  Report Type: 
  Country: None (occurrence: None)
  Receive Date: 20060810
  Receipt Date: 20031218
  Transmission Date: 20061208
  Serious: No
  Sender: FDA-Public Use
  Company Number: US-GLAXOSMITHKLINE-A0494816A

PATIENT
  Sex: Male

DRUGS (5)
  1. PAXIL [Suspect]
     Indication: ANXIETY
     Dosage: 10MG PER DAY
     Route: 048
  2. GLUCOTROL XL [Concomitant]
     Dosage: 10MG TWICE PER DAY
  3. ASPIRIN [Concomitant]
     Dosage: 81MG PER DAY
  4. GLUCOSE [Concomitant]
  5. ACIPHEX [Concomitant]

REACTIONS (1)
  - DRUG WITHDRAWAL SYNDROME [None]
